FAERS Safety Report 5715103-9 (Version None)
Quarter: 2008Q2

REPORT INFORMATION
  Report Type: 
  Country: None (occurrence: None)
  Receive Date: 20080423
  Receipt Date: 20080421
  Transmission Date: 20081010
  Serious: Yes (Other)
  Sender: FDA-Public Use
  Company Number: US-BOEHRINGER INGELHEIM GMBH, GERMANY-2008-BP-04995BP

PATIENT
  Sex: Female
  Weight: 68 kg

DRUGS (4)
  1. APTIVUS/RITONAVIR CAPSULES [Suspect]
     Indication: HIV INFECTION
     Dosage: TPV 500 MG BID / R 400 MG
     Route: 048
     Dates: start: 20070516, end: 20071012
  2. ATRIPLA [Concomitant]
     Indication: HIV INFECTION
     Route: 048
     Dates: start: 20070516, end: 20071012
  3. ZITHROMYCIN [Concomitant]
     Route: 048
     Dates: start: 20070516, end: 20071012
  4. BACTRIM DS [Concomitant]
     Route: 048
     Dates: start: 20070516, end: 20071012

REACTIONS (4)
  - ANOREXIA [None]
  - FATIGUE [None]
  - HEPATIC ENZYME INCREASED [None]
  - MALAISE [None]
